FAERS Safety Report 12439334 (Version 1)
Quarter: 2016Q2

REPORT INFORMATION
  Report Type: Spontaneous
  Country: US (occurrence: US)
  Receive Date: 20160606
  Receipt Date: 20160606
  Transmission Date: 20160815
  Serious: No
  Sender: FDA-Public Use
  Company Number: US-BAUSCH-BL-2016-011458

PATIENT
  Sex: Female

DRUGS (2)
  1. LUZU [Suspect]
     Active Substance: LULICONAZOLE
     Route: 061
     Dates: start: 2016, end: 20160428
  2. LUZU [Suspect]
     Active Substance: LULICONAZOLE
     Indication: FUNGAL SKIN INFECTION
     Route: 061
     Dates: start: 20160310, end: 20160324

REACTIONS (1)
  - Drug ineffective [Unknown]
